FAERS Safety Report 19949058 (Version 1)
Quarter: 2021Q4

REPORT INFORMATION
  Report Type: Spontaneous
  Country: US (occurrence: US)
  Receive Date: 20211012
  Receipt Date: 20211012
  Transmission Date: 20220303
  Serious: No
  Sender: FDA-Public Use
  Company Number: None

PATIENT
  Age: 64 Year
  Sex: Male
  Weight: 47.25 kg

DRUGS (1)
  1. LOTRIMIN DAILY PREVENTION DEO [Suspect]
     Active Substance: TOLNAFTATE
     Indication: Fungal infection
     Dosage: ?          QUANTITY:2 CANS;
     Route: 061
     Dates: start: 20210811, end: 20211011

REACTIONS (2)
  - Skin irritation [None]
  - Recalled product administered [None]

NARRATIVE: CASE EVENT DATE: 20211012
